FAERS Safety Report 19947595 (Version 1)
Quarter: 2021Q4

REPORT INFORMATION
  Report Type: Spontaneous
  Country: CD (occurrence: CD)
  Receive Date: 20211013
  Receipt Date: 20211013
  Transmission Date: 20220303
  Serious: Yes (Death, Other)
  Sender: FDA-Public Use
  Company Number: CD-SA-SAC20211012000338

PATIENT
  Age: 52 Year
  Sex: Male
  Weight: 54 kg

DRUGS (1)
  1. FEXINIDAZOLE [Suspect]
     Active Substance: FEXINIDAZOLE
     Indication: Hip arthroplasty
     Dosage: 24 DF, BID
     Route: 048
     Dates: start: 20210209, end: 20210218

REACTIONS (2)
  - Asphyxia [Fatal]
  - Completed suicide [Fatal]

NARRATIVE: CASE EVENT DATE: 20210219
